FAERS Safety Report 9366616 (Version 2)
Quarter: 2013Q3

REPORT INFORMATION
  Report Type: Spontaneous
  Country: US (occurrence: US)
  Receive Date: 20130625
  Receipt Date: 20130731
  Transmission Date: 20140515
  Serious: Yes (Life-Threatening, Other)
  Sender: FDA-Public Use
  Company Number: US-BRISTOL-MYERS SQUIBB COMPANY-19018977

PATIENT
  Sex: Male

DRUGS (1)
  1. YERVOY [Suspect]

REACTIONS (2)
  - Leukaemia [Unknown]
  - Blast cell proliferation [Unknown]
